FAERS Safety Report 9068573 (Version 1)
Quarter: 2013Q1

REPORT INFORMATION
  Report Type: Spontaneous
  Country: CH (occurrence: CH)
  Receive Date: 20130206
  Receipt Date: 20130206
  Transmission Date: 20140127
  Serious: Yes (Hospitalization)
  Sender: FDA-Public Use
  Company Number: CH-ELI_LILLY_AND_COMPANY-CH201301009802

PATIENT
  Age: 55 None
  Sex: Male
  Weight: 105 kg

DRUGS (4)
  1. EFIENT [Suspect]
     Indication: PERCUTANEOUS CORONARY INTERVENTION
     Dosage: 60 MG, SINGLE
     Dates: start: 20101020, end: 20101020
  2. EFIENT [Suspect]
     Dosage: 10 MG, QD
     Route: 048
     Dates: start: 20101021, end: 20111001
  3. ACETYLSALICYLIC ACID [Concomitant]
     Dosage: UNK, SINGLE
     Dates: start: 20101020
  4. ACETYLSALICYLIC ACID [Concomitant]
     Dosage: 100 MG, QD

REACTIONS (2)
  - Urinary retention [Recovered/Resolved]
  - Haematuria [Recovered/Resolved]
